FAERS Safety Report 21651169 (Version 1)
Quarter: 2022Q4

REPORT INFORMATION
  Report Type: Spontaneous
  Country: US (occurrence: None)
  Receive Date: 20221126
  Receipt Date: 20221126
  Transmission Date: 20230112
  Serious: Yes (Disabling, Other)
  Sender: FDA-Public Use
  Company Number: None

PATIENT
  Age: 50 Year
  Sex: Female
  Weight: 74.25 kg

DRUGS (1)
  1. HUMIRA [Suspect]
     Active Substance: ADALIMUMAB
     Dosage: OTHER FREQUENCY : BIWEEKLY;?
     Route: 058

REACTIONS (6)
  - Rash [None]
  - COVID-19 [None]
  - Pain [None]
  - Burning sensation [None]
  - Pruritus [None]
  - Palmoplantar pustulosis [None]

NARRATIVE: CASE EVENT DATE: 20220801
